FAERS Safety Report 17913402 (Version 1)
Quarter: 2020Q2

REPORT INFORMATION
  Report Type: Spontaneous
  Country: US (occurrence: US)
  Receive Date: 20200618
  Receipt Date: 20200618
  Transmission Date: 20200714
  Serious: No
  Sender: FDA-Public Use
  Company Number: US-THERAPEUTICSMD-2020TMD02007

PATIENT
  Sex: Female
  Weight: 59.86 kg

DRUGS (5)
  1. IMVEXXY [Suspect]
     Active Substance: ESTRADIOL
     Indication: VULVOVAGINAL DRYNESS
     Dosage: 10 ?G, 2X/WEEK BEFORE BED
     Route: 067
     Dates: start: 202003
  2. ^ALLERGY PILL^ [Concomitant]
     Dosage: EVERY FEW DAYS
  3. AMLODIPINE [Concomitant]
     Active Substance: AMLODIPINE BESYLATE
  4. IMVEXXY [Suspect]
     Active Substance: ESTRADIOL
     Dosage: 10 ?G, EVERY 5-6 DAYS BEFORE BED
     Route: 067
  5. VITAMIN D [Concomitant]
     Active Substance: VITAMIN D NOS

REACTIONS (3)
  - Off label use [Not Recovered/Not Resolved]
  - Vaginal haemorrhage [Recovering/Resolving]
  - Drug ineffective for unapproved indication [Unknown]
